FAERS Safety Report 10697958 (Version 1)
Quarter: 2015Q1

REPORT INFORMATION
  Report Type: Spontaneous
  Country: FR (occurrence: None)
  Receive Date: 20150106
  Receipt Date: 20150106
  Transmission Date: 20150721
  Serious: Yes (Congenital Anomaly, Other)
  Sender: FDA-Public Use
  Company Number: 8003837

PATIENT
  Sex: Male

DRUGS (3)
  1. ASPEGIC [Suspect]
     Active Substance: ASPIRIN DL-LYSINE
     Indication: PRODUCT USED FOR UNKNOWN INDICATION
     Dosage: LOW DOSE, DOSE TAKEN BEFORE 15 WEEKS AMENORRHOEA + 6 DAYS ?PRODUCT TAKEN BY MOTHER?
  2. LEVOTHYROX (LEVOTHYROXINE SODIUM) (LEVOTHYROXINE SODIUM) [Suspect]
     Active Substance: LEVOTHYROXINE SODIUM
     Indication: HYPOTHYROIDISM
     Dosage: ONG TERM THERAPY (87.5 MG, 1 IN 1 D)?PRODUCT TAKEN BY MOTHER
  3. UTROGESTAN [Suspect]
     Active Substance: PROGESTERONE
     Indication: PRODUCT USED FOR UNKNOWN INDICATION
     Dosage: BEFORE PREGNANCY AND BEFORE 15 WEEKS OF AMENORRHOEA + 1 DAY ?PRODUCT TAKEN BY MOTHER

REACTIONS (2)
  - Hypospadias [None]
  - Foetal exposure during pregnancy [None]

NARRATIVE: CASE EVENT DATE: 20100709
